FAERS Safety Report 25753639 (Version 1)
Quarter: 2025Q3

REPORT INFORMATION
  Report Type: Spontaneous
  Country: US (occurrence: US)
  Receive Date: 20250903
  Receipt Date: 20250903
  Transmission Date: 20251020
  Serious: No
  Sender: PFIZER
  Company Number: US-PFIZER INC-202500172954

PATIENT
  Sex: Male

DRUGS (1)
  1. LITFULO [Suspect]
     Active Substance: RITLECITINIB TOSYLATE
     Indication: Alopecia
     Dosage: UNK, ALTERNATE DAY

REACTIONS (2)
  - Nasopharyngitis [Not Recovered/Not Resolved]
  - Intentional product misuse [Unknown]
